FAERS Safety Report 8178648-0 (Version None)
Quarter: 2012Q1

REPORT INFORMATION
  Report Type: 
  Country: None (occurrence: None)
  Receive Date: 20120301
  Receipt Date: 20120221
  Transmission Date: 20120608
  Serious: Yes (Disabling, Other)
  Sender: FDA-Public Use
  Company Number: US-MERCK-1202USA03717

PATIENT
  Age: 48 Year
  Sex: Female
  Weight: 90 kg

DRUGS (21)
  1. LOMOTIL [Suspect]
     Indication: CROHN'S DISEASE
     Route: 048
  2. POTASSIUM CHLORIDE [Suspect]
     Indication: MINERAL SUPPLEMENTATION
     Route: 065
  3. NORVASC [Suspect]
     Indication: LUNG DISORDER
     Route: 048
  4. GENERLAC [Suspect]
     Indication: CROHN'S DISEASE
     Route: 065
  5. ATENOLOL [Suspect]
     Indication: HYPERTENSION
     Route: 048
  6. NORVASC [Suspect]
     Indication: CARDIAC DISORDER
     Route: 048
  7. REMERON [Suspect]
     Indication: INSOMNIA
     Route: 048
  8. LANTUS [Suspect]
     Indication: DIABETES MELLITUS
     Route: 065
  9. ZANTAC [Suspect]
     Indication: GASTROOESOPHAGEAL REFLUX DISEASE
     Route: 065
  10. HUMULIN R [Suspect]
     Indication: DIABETES MELLITUS
     Route: 065
  11. DILANTIN [Suspect]
     Indication: CONVULSION
     Route: 048
  12. TYLENOL W/ CODEINE NO. 3 [Suspect]
     Indication: MIGRAINE
     Route: 065
  13. METHOCARBAMOL [Suspect]
     Indication: MUSCLE SPASMS
     Route: 048
  14. NITROSTAT [Suspect]
     Indication: CHEST PAIN
     Route: 065
  15. ASPIRIN [Suspect]
     Indication: CHEST PAIN
     Route: 065
  16. ZOCOR [Suspect]
     Indication: BLOOD CHOLESTEROL INCREASED
     Route: 048
  17. FUROSEMIDE [Suspect]
     Route: 048
  18. ATIVAN [Suspect]
     Indication: NERVOUSNESS
     Route: 048
  19. ISOSORBIDE MONONITRATE [Suspect]
     Indication: CARDIAC DISORDER
     Route: 065
  20. DEPAKOTE [Suspect]
     Indication: CONVULSION
     Route: 048
  21. METHOCARBAMOL [Suspect]
     Indication: NEUROPATHY PERIPHERAL
     Route: 048

REACTIONS (4)
  - BEDRIDDEN [None]
  - CHRONIC OBSTRUCTIVE PULMONARY DISEASE [None]
  - EMPHYSEMA [None]
  - AMNESIA [None]
